FAERS Safety Report 13268532 (Version 1)
Quarter: 2017Q1

REPORT INFORMATION
  Report Type: Spontaneous
  Country: US (occurrence: US)
  Receive Date: 20170224
  Receipt Date: 20170224
  Transmission Date: 20170428
  Serious: No
  Sender: FDA-Public Use
  Company Number: US-BAYER-2017-036969

PATIENT
  Age: 71 Year
  Sex: Female
  Weight: 86 kg

DRUGS (1)
  1. ALEVE [Suspect]
     Active Substance: NAPROXEN SODIUM
     Indication: PAIN
     Route: 048
     Dates: start: 201702, end: 201702

REACTIONS (3)
  - Energy increased [Recovered/Resolved]
  - Abdominal pain upper [Recovered/Resolved]
  - Feeling abnormal [Recovered/Resolved]

NARRATIVE: CASE EVENT DATE: 201702
